FAERS Safety Report 14664539 (Version 1)
Quarter: 2018Q1

REPORT INFORMATION
  Report Type: Spontaneous
  Country: DE (occurrence: DE)
  Receive Date: 20180321
  Receipt Date: 20180321
  Transmission Date: 20180509
  Serious: Yes (Other)
  Sender: FDA-Public Use
  Company Number: DE-PFIZER INC-2018113403

PATIENT
  Age: 19 Year
  Sex: Female

DRUGS (3)
  1. ATOSIL [Concomitant]
     Active Substance: PROMETHAZINE HYDROCHLORIDE
     Route: 048
     Dates: start: 20160903
  2. SERTRALINE HCL [Suspect]
     Active Substance: SERTRALINE HYDROCHLORIDE
     Dosage: 100 MG, 1X/DAY
     Route: 048
     Dates: start: 20160910, end: 20161116
  3. OLANZAPIN [Suspect]
     Active Substance: OLANZAPINE
     Dosage: 10 MG, 1X/DAY
     Route: 048
     Dates: start: 20160907, end: 20161114

REACTIONS (1)
  - Weight increased [Not Recovered/Not Resolved]

NARRATIVE: CASE EVENT DATE: 20161112
